FAERS Safety Report 4336197-1 (Version None)
Quarter: 2004Q2

REPORT INFORMATION
  Report Type: 
  Country: None (occurrence: None)
  Receive Date: 20040407
  Receipt Date: 20040322
  Transmission Date: 20050107
  Serious: Yes (Hospitalization)
  Sender: FDA-Public Use
  Company Number: F01200400591

PATIENT
  Age: 68 Year
  Sex: Male

DRUGS (4)
  1. (OXALIPLATIN) - SOLUTION - 85 MG/M2 [Suspect]
     Indication: COLORECTAL CANCER
     Dosage: 85 MG/M2 Q2W, INTRAVENOUS
     Route: 042
     Dates: start: 20040318, end: 20040318
  2. FLUOROURACIL [Suspect]
     Dosage: 400 MG/M2 BOLUS THEN 2400 MG/M2 AS 46 HOURS INFUSION Q2W, INTRAVENOUS
     Route: 042
     Dates: start: 20040318, end: 20040318
  3. LEUCOVORIN CALCIUM [Suspect]
     Dates: start: 20040318, end: 20040318
  4. AVASTIN [Suspect]
     Dosage: Q2W, INTRAVENOUS
     Route: 042
     Dates: start: 20040318, end: 20040318

REACTIONS (1)
  - CARDIAC FAILURE CONGESTIVE [None]
